FAERS Safety Report 11418451 (Version 1)
Quarter: 2015Q3

REPORT INFORMATION
  Report Type: Spontaneous
  Country: US (occurrence: US)
  Receive Date: 20150826
  Receipt Date: 20150826
  Transmission Date: 20151125
  Serious: No
  Sender: FDA-Public Use
  Company Number: US-NOVEN PHARMACEUTICALS, INC.-US2015000400

PATIENT
  Age: 52 Year
  Sex: Female

DRUGS (7)
  1. CLOBETASOL [Concomitant]
     Active Substance: CLOBETASOL
     Dosage: UNK
     Route: 061
  2. MINIVELLE [Suspect]
     Active Substance: ESTRADIOL
     Indication: HOT FLUSH
     Dosage: UNK, 2/WK
     Route: 062
  3. TACLONEX [Concomitant]
     Active Substance: BETAMETHASONE DIPROPIONATE\CALCIPOTRIENE\CALCIPOTRIENE HYDRATE
     Dosage: UNK, UNKNOWN
     Route: 061
  4. MINIVELLE [Suspect]
     Active Substance: ESTRADIOL
     Indication: NIGHT SWEATS
  5. DYMISTA [Concomitant]
     Active Substance: AZELASTINE HYDROCHLORIDE\FLUTICASONE PROPIONATE
     Indication: SINUSITIS
     Dosage: SINUS SPRAY FOR SINUSITIS
     Route: 045
  6. VITAMINS [Concomitant]
     Active Substance: VITAMINS
  7. XANAX [Concomitant]
     Active Substance: ALPRAZOLAM
     Indication: SLEEP DISORDER
     Dosage: UNK, BEDTIME

REACTIONS (7)
  - Inflammation [Unknown]
  - Arthralgia [Unknown]
  - Memory impairment [Unknown]
  - Antinuclear antibody increased [Unknown]
  - Sleep disorder [Unknown]
  - Drug administered at inappropriate site [Unknown]
  - Pain in extremity [Unknown]
